FAERS Safety Report 11363578 (Version 1)
Quarter: 2015Q3

REPORT INFORMATION
  Report Type: Spontaneous
  Country: US (occurrence: None)
  Receive Date: 20150810
  Receipt Date: 20150810
  Transmission Date: 20151125
  Serious: Yes (Life-Threatening, Hospitalization, Disabling, Other)
  Sender: FDA-Public Use
  Company Number: None

PATIENT
  Age: 55 Year
  Sex: Male
  Weight: 129.28 kg

DRUGS (21)
  1. MYCOPHENOLATE SODIUM (MYFORTIC) [Concomitant]
  2. ASPIRIN. [Concomitant]
     Active Substance: ASPIRIN
  3. THYMOGLOBULIN [Suspect]
     Active Substance: LAPINE T-LYMPHOCYTE IMMUNE GLOBULIN
     Indication: HEART TRANSPLANT
     Dates: start: 20131125, end: 20131126
  4. PREDNISONE. [Concomitant]
     Active Substance: PREDNISONE
  5. BACTRIM DS [Concomitant]
     Active Substance: SULFAMETHOXAZOLE\TRIMETHOPRIM
  6. MAGNESIUM OXIDE. [Concomitant]
     Active Substance: MAGNESIUM OXIDE
  7. IRON (FERROUS SULFATE) [Concomitant]
  8. ERGOCALCIFEROL (VITAMIN D2) [Concomitant]
  9. CALTRATE 600+D PLUS MINERALS [Concomitant]
  10. ZYRTEC [Concomitant]
     Active Substance: CETIRIZINE HYDROCHLORIDE
  11. CIPROFLOXACIN. [Concomitant]
     Active Substance: CIPROFLOXACIN
  12. SIMVASTATIN (ZOCOR) [Concomitant]
  13. SERTRALINE (ZOLOFT) [Concomitant]
  14. GABAPENTIN (NEURONTIN) [Concomitant]
  15. OMEPRAZOLE (PRILOSEC) [Concomitant]
  16. CALCIUM-800 [Concomitant]
  17. TACROLIMUS (PROGRAF) [Concomitant]
  18. NYSTATIN. [Concomitant]
     Active Substance: NYSTATIN
  19. AMLODIPINE [Concomitant]
     Active Substance: AMLODIPINE BESYLATE
  20. B-100 COMPLEX ER [Concomitant]
  21. AMOXICILLIN. [Concomitant]
     Active Substance: AMOXICILLIN

REACTIONS (2)
  - Leg amputation [None]
  - Anaphylactic shock [None]

NARRATIVE: CASE EVENT DATE: 20131125
